FAERS Safety Report 15689755 (Version 1)
Quarter: 2018Q4

REPORT INFORMATION
  Report Type: Spontaneous
  Country: US (occurrence: US)
  Receive Date: 20181205
  Receipt Date: 20181205
  Transmission Date: 20190205
  Serious: Yes (Death, Other)
  Sender: FDA-Public Use
  Company Number: US-009507513-1812USA000270

PATIENT
  Age: 72 Year
  Sex: Female

DRUGS (1)
  1. INTRON A [Suspect]
     Active Substance: INTERFERON ALFA-2B
     Indication: ILL-DEFINED DISORDER
     Dosage: INTRON A (18MMU/MDV), STRENGTH:6MMU/ML, DOSE:300,000 UNITS
     Route: 023
     Dates: start: 20170403

REACTIONS (1)
  - Death [Fatal]

NARRATIVE: CASE EVENT DATE: 20181129
